FAERS Safety Report 5194589-5 (Version None)
Quarter: 2006Q4

REPORT INFORMATION
  Report Type: 
  Country: None (occurrence: None)
  Receive Date: 20061229
  Receipt Date: 20061220
  Transmission Date: 20070319
  Serious: Yes (Other)
  Sender: FDA-Public Use
  Company Number: US-JNJFOC-20061206406

PATIENT
  Sex: Female
  Weight: 67.59 kg

DRUGS (6)
  1. REMICADE [Suspect]
     Dosage: 3 TREATMENTS ON UNSPECIFIED DATES
     Route: 042
  2. REMICADE [Suspect]
     Indication: COLITIS ULCERATIVE
     Route: 042
  3. PREDNISONE [Concomitant]
  4. METHOTREXATE [Concomitant]
  5. BLOOD PRESSURE MEDICATION [Concomitant]
  6. FORTEO [Concomitant]
     Indication: OSTEOPOROSIS

REACTIONS (2)
  - ARTHRITIS [None]
  - SYSTEMIC LUPUS ERYTHEMATOSUS [None]
